FAERS Safety Report 7430798-X (Version None)
Quarter: 2011Q2

REPORT INFORMATION
  Report Type: 
  Country: None (occurrence: None)
  Receive Date: 20110421
  Receipt Date: 20110414
  Transmission Date: 20111010
  Serious: Yes (Other)
  Sender: FDA-Public Use
  Company Number: PT-AMGEN-PRTSP2011019834

PATIENT
  Age: 54 Year
  Sex: Female

DRUGS (2)
  1. PAMIDRONATE DISODIUM [Concomitant]
  2. CINACALCET HYDROCHLORIDE [Suspect]
     Indication: HYPERPARATHYROIDISM PRIMARY

REACTIONS (4)
  - THYROIDECTOMY [None]
  - LYMPHADENECTOMY [None]
  - HUNGRY BONE SYNDROME [None]
  - PARATHYROID GLAND ENLARGEMENT [None]
